FAERS Safety Report 18182848 (Version 3)
Quarter: 2023Q1

REPORT INFORMATION
  Report Type: Spontaneous
  Country: JP (occurrence: None)
  Receive Date: 20200821
  Receipt Date: 20230314
  Transmission Date: 20230418
  Serious: Yes (Death, Hospitalization)
  Sender: FDA-Public Use
  Company Number: 2020SF05761

PATIENT
  Age: 71 Year
  Sex: Male
  Weight: 59 kg

DRUGS (12)
  1. TAGRISSO [Suspect]
     Active Substance: OSIMERTINIB
     Indication: Non-small cell lung cancer
     Route: 048
     Dates: start: 20200410, end: 20200725
  2. NEORAL [Concomitant]
     Active Substance: CYCLOSPORINE
     Dosage: 25 MG WAS STARTED AT 2 CAPSULES/DOSE TWICE DAILY
  3. NEORAL [Concomitant]
     Active Substance: CYCLOSPORINE
     Dosage: 3 CAPSULES/DOSE TWICE DAILY
  4. ISOSORBIDE TAPE [Concomitant]
     Indication: Blood pressure systolic
  5. VIMPAT [Concomitant]
     Active Substance: LACOSAMIDE
     Route: 048
     Dates: start: 20200220, end: 20200810
  6. LEVETIRACETAM [Concomitant]
     Active Substance: LEVETIRACETAM
     Route: 048
     Dates: start: 20200217, end: 20200810
  7. LOPERAMIDE [Concomitant]
     Active Substance: LOPERAMIDE
     Dosage: 1 MG (2 TABLETS ONCE A DAY)
     Route: 048
     Dates: start: 20200617
  8. MEDROL [Concomitant]
     Active Substance: METHYLPREDNISOLONE
     Route: 042
     Dates: start: 20200728
  9. MEDROL [Concomitant]
     Active Substance: METHYLPREDNISOLONE
     Route: 042
     Dates: start: 20200804
  10. PIPERACILLIN SODIUM\TAZOBACTAM SODIUM [Concomitant]
     Active Substance: PIPERACILLIN SODIUM\TAZOBACTAM SODIUM
     Route: 042
     Dates: end: 20200801
  11. WATER SOLUBLE PREDONINE [Concomitant]
     Dosage: 60 MG (1 MG/KG/DAY)
     Route: 065
     Dates: start: 20200729, end: 20200801
  12. MORPHINE [Concomitant]
     Active Substance: MORPHINE
     Route: 058
     Dates: start: 20200808

REACTIONS (3)
  - Interstitial lung disease [Fatal]
  - SARS-CoV-2 test negative [Unknown]
  - Diarrhoea [Unknown]

NARRATIVE: CASE EVENT DATE: 20200610
